FAERS Safety Report 18895440 (Version 1)
Quarter: 2021Q1

REPORT INFORMATION
  Report Type: Spontaneous
  Country: CZ (occurrence: CZ)
  Receive Date: 20210215
  Receipt Date: 20210215
  Transmission Date: 20210420
  Serious: Yes (Hospitalization, Other)
  Sender: FDA-Public Use
  Company Number: CZ-MYLANLABS-2021M1009041

PATIENT
  Age: 33 Year
  Sex: Female

DRUGS (6)
  1. IBUPROFEN W/PSEUDOEPHEDRINE [Suspect]
     Active Substance: IBUPROFEN\PSEUDOEPHEDRINE HYDROCHLORIDE
     Indication: HEADACHE
     Dosage: UNK
     Route: 065
  2. IBUPROFEN. [Suspect]
     Active Substance: IBUPROFEN
     Indication: BACK PAIN
     Dosage: UNK
  3. IBUPROFEN. [Suspect]
     Active Substance: IBUPROFEN
     Indication: HEADACHE
     Dosage: UNK
     Route: 065
  4. IBUPROFEN W/PSEUDOEPHEDRINE [Suspect]
     Active Substance: IBUPROFEN\PSEUDOEPHEDRINE HYDROCHLORIDE
     Indication: BACK PAIN
     Dosage: UNK
  5. VALERIAN                           /01561601/ [Concomitant]
     Active Substance: VALERIAN
     Indication: PRODUCT USED FOR UNKNOWN INDICATION
     Dosage: UNK
     Route: 065
     Dates: start: 2020
  6. ALPRAZOLAM. [Concomitant]
     Active Substance: ALPRAZOLAM
     Indication: PRODUCT USED FOR UNKNOWN INDICATION
     Dosage: UNK
     Route: 065
     Dates: start: 2020

REACTIONS (17)
  - Oedematous kidney [Recovering/Resolving]
  - Renal tubular necrosis [Recovering/Resolving]
  - Adrenal disorder [Recovering/Resolving]
  - Vomiting [Recovering/Resolving]
  - Diarrhoea [Recovering/Resolving]
  - Hyperkalaemia [Recovering/Resolving]
  - Fluid overload [Recovering/Resolving]
  - Head injury [Recovering/Resolving]
  - Fall [Recovering/Resolving]
  - Sepsis [Recovering/Resolving]
  - Abscess limb [Recovering/Resolving]
  - Oedema [Recovering/Resolving]
  - Dyspnoea [Recovering/Resolving]
  - Overdose [Recovering/Resolving]
  - Urinary retention [Recovered/Resolved]
  - Cellulitis [Recovering/Resolving]
  - Hyponatraemia [Recovering/Resolving]

NARRATIVE: CASE EVENT DATE: 2020
